FAERS Safety Report 8333692-5 (Version None)
Quarter: 2012Q2

REPORT INFORMATION
  Report Type: 
  Country: None (occurrence: None)
  Receive Date: 20120503
  Receipt Date: 20120427
  Transmission Date: 20120825
  Serious: Yes (Other)
  Sender: FDA-Public Use
  Company Number: US-BAYER-2012-042464

PATIENT
  Age: 52 Year
  Sex: Female

DRUGS (2)
  1. MAGNEVIST [Suspect]
     Indication: IMAGING PROCEDURE
  2. GADOLINIUM IN UNSPECIFIED DRUG [Suspect]

REACTIONS (15)
  - INJURY [None]
  - EMOTIONAL DISTRESS [None]
  - GENERAL PHYSICAL HEALTH DETERIORATION [None]
  - ANXIETY [None]
  - NEPHROGENIC SYSTEMIC FIBROSIS [None]
  - PEAU D'ORANGE [None]
  - SKIN FIBROSIS [None]
  - PRURITUS [None]
  - ANHEDONIA [None]
  - MUSCLE CONTRACTURE [None]
  - PAIN [None]
  - DEFORMITY [None]
  - SCAR [None]
  - SKIN DISORDER [None]
  - SKIN TIGHTNESS [None]
